FAERS Safety Report 16002536 (Version 1)
Quarter: 2019Q1

REPORT INFORMATION
  Report Type: Spontaneous
  Country: US (occurrence: US)
  Receive Date: 20190225
  Receipt Date: 20190225
  Transmission Date: 20190418
  Serious: No
  Sender: FDA-Public Use
  Company Number: US-SA-2019SA047111

PATIENT
  Sex: Male

DRUGS (2)
  1. WELCHOL [Suspect]
     Active Substance: COLESEVELAM HYDROCHLORIDE
     Indication: ABDOMINAL DISCOMFORT
     Dosage: 1875 MG, BID (625MG 3 TABLETS)
     Route: 048
  2. COLESEVELAM HYDROCHLORIDE. [Suspect]
     Active Substance: COLESEVELAM HYDROCHLORIDE
     Indication: ABDOMINAL DISCOMFORT
     Dosage: 1875 MG, BID (625MG 3 TABLETS)
     Route: 048

REACTIONS (3)
  - Constipation [Recovered/Resolved]
  - Off label use [Not Recovered/Not Resolved]
  - Muscle spasms [Recovered/Resolved]
